FAERS Safety Report 22045265 (Version 1)
Quarter: 2023Q1

REPORT INFORMATION
  Report Type: Spontaneous
  Country: US (occurrence: None)
  Receive Date: 20230227
  Receipt Date: 20230227
  Transmission Date: 20230418
  Serious: No
  Sender: FDA-Public Use
  Company Number: None

PATIENT
  Sex: 0

DRUGS (1)
  1. VENOFER [Suspect]
     Active Substance: IRON SUCROSE

REACTIONS (8)
  - Flank pain [None]
  - Pain in extremity [None]
  - Abdominal pain [None]
  - Therapy interrupted [None]
  - Infusion related reaction [None]
  - Hypersensitivity [None]
  - Joint swelling [None]
  - Peripheral swelling [None]
